FAERS Safety Report 9414550 (Version 1)
Quarter: 2013Q3

REPORT INFORMATION
  Report Type: Report from Study
  Country: US (occurrence: US)
  Receive Date: 20130723
  Receipt Date: 20130723
  Transmission Date: 20140515
  Serious: Yes (Death, Other)
  Sender: FDA-Public Use
  Company Number: US-ROCHE-1201690

PATIENT
  Sex: Male
  Weight: 93.98 kg

DRUGS (3)
  1. XELODA [Suspect]
     Indication: RECTAL CANCER
     Route: 048
     Dates: start: 20121018, end: 20130129
  2. METHADONE [Concomitant]
     Route: 048
     Dates: start: 20130202
  3. PERCOCET [Concomitant]
     Route: 048

REACTIONS (3)
  - Death [Fatal]
  - Thrombosis [Unknown]
  - Deep vein thrombosis [Unknown]
